FAERS Safety Report 23756541 (Version 1)
Quarter: 2024Q2

REPORT INFORMATION
  Report Type: Spontaneous
  Country: US (occurrence: None)
  Receive Date: 20240417
  Receipt Date: 20240417
  Transmission Date: 20240716
  Serious: Yes (Hospitalization)
  Sender: FDA-Public Use
  Company Number: None

PATIENT
  Age: 75 Year
  Sex: Female
  Weight: 110 kg

DRUGS (1)
  1. CAPECITABINE [Suspect]
     Active Substance: CAPECITABINE
     Dosage: 2800 MG TWICE A DAY ORAL
     Route: 048

REACTIONS (2)
  - Atrial fibrillation [None]
  - Skin exfoliation [None]

NARRATIVE: CASE EVENT DATE: 20240320
